FAERS Safety Report 12413361 (Version 2)
Quarter: 2016Q2

REPORT INFORMATION
  Report Type: Spontaneous
  Country: TR (occurrence: TR)
  Receive Date: 20160527
  Receipt Date: 20160622
  Transmission Date: 20160815
  Serious: Yes (Life-Threatening, Hospitalization, Other)
  Sender: FDA-Public Use
  Company Number: TR-009507513-1605TUR009575

PATIENT
  Age: 24 Year
  Sex: Female

DRUGS (2)
  1. LINEZOLID. [Interacting]
     Active Substance: LINEZOLID
     Indication: ANTIBIOTIC THERAPY
  2. MIRTAZAPINE. [Suspect]
     Active Substance: MIRTAZAPINE
     Indication: DEPRESSION
     Route: 048

REACTIONS (2)
  - Drug interaction [Unknown]
  - Serotonin syndrome [Unknown]
